FAERS Safety Report 6207738-4 (Version None)
Quarter: 2009Q2

REPORT INFORMATION
  Report Type: 
  Country: None (occurrence: None)
  Receive Date: 20090526
  Receipt Date: 20090513
  Transmission Date: 20091009
  Serious: Yes (Other)
  Sender: FDA-Public Use
  Company Number: A-US2009-24734

PATIENT
  Age: 8 Month

DRUGS (3)
  1. VENTAVIS             (ILOPROST) INHALER [Suspect]
     Indication: PULMONARY HYPERTENSION
     Dosage: RESPIRATORY
     Route: 055
     Dates: start: 20081217, end: 20090306
  2. SILDENAFIL(SILDENAFIL) TABLET [Suspect]
     Indication: PULMONARY HYPERTENSION
     Dosage: ORAL
     Route: 048
     Dates: start: 20090108, end: 20090123
  3. TRACLEER [Concomitant]

REACTIONS (1)
  - OBSTRUCTION GASTRIC [None]
